FAERS Safety Report 12573270 (Version 1)
Quarter: 2016Q3

REPORT INFORMATION
  Report Type: Spontaneous
  Country: US (occurrence: None)
  Receive Date: 20160719
  Receipt Date: 20160719
  Transmission Date: 20161109
  Serious: Yes (Hospitalization, Disabling)
  Sender: FDA-Public Use
  Company Number: None

PATIENT
  Age: 47 Year
  Sex: Female
  Weight: 79.38 kg

DRUGS (6)
  1. GABAPENTIN. [Concomitant]
     Active Substance: GABAPENTIN
  2. LORAZEPAM. [Suspect]
     Active Substance: LORAZEPAM
     Indication: PRODUCT USED FOR UNKNOWN INDICATION
     Route: 048
     Dates: start: 20150316, end: 20150909
  3. VITAMIN C [Concomitant]
     Active Substance: ASCORBIC ACID
  4. RESPIRADONE [Concomitant]
     Active Substance: RISPERIDONE
  5. HYDROXYZINE [Concomitant]
     Active Substance: HYDROXYZINE\HYDROXYZINE HYDROCHLORIDE
  6. MAGNESIUM [Concomitant]
     Active Substance: MAGNESIUM

REACTIONS (15)
  - Nightmare [None]
  - Insomnia [None]
  - Crying [None]
  - Fear [None]
  - Panic attack [None]
  - Headache [None]
  - Tremor [None]
  - Suicidal ideation [None]
  - Burning sensation [None]
  - Anxiety [None]
  - Post-traumatic stress disorder [None]
  - Pain [None]
  - Muscle tightness [None]
  - Depersonalisation/derealisation disorder [None]
  - Plicated tongue [None]

NARRATIVE: CASE EVENT DATE: 20150909
